FAERS Safety Report 5355520-2 (Version None)
Quarter: 2007Q2

REPORT INFORMATION
  Report Type: 
  Country: None (occurrence: None)
  Receive Date: 20070613
  Receipt Date: 20070611
  Transmission Date: 20071010
  Serious: Yes (Death)
  Sender: FDA-Public Use
  Company Number: DE-AVENTIS-200710308DE

PATIENT
  Age: 76 Year
  Sex: Female
  Weight: 65 kg

DRUGS (6)
  1. CLEXANE [Suspect]
     Indication: PROPHYLAXIS
     Route: 058
     Dates: start: 20070121, end: 20070130
  2. AMPICILLIN [Concomitant]
     Indication: SPLENECTOMY
     Route: 042
     Dates: start: 20070122, end: 20070101
  3. CLONT                              /00012501/ [Concomitant]
     Route: 042
  4. PANTOPRAZOL [Concomitant]
     Dosage: DOSE: NOT REPORTED
  5. FUROSEMIDE [Concomitant]
     Route: 048
  6. PASPERTIN [Concomitant]
     Dosage: DOSE: NOT REPORTED

REACTIONS (2)
  - PHARMACEUTICAL PRODUCT COMPLAINT [None]
  - PULMONARY EMBOLISM [None]
